FAERS Safety Report 11346485 (Version 1)
Quarter: 2015Q3

REPORT INFORMATION
  Report Type: Spontaneous
  Country: US (occurrence: US)
  Receive Date: 20150803
  Receipt Date: 20150803
  Transmission Date: 20151125
  Serious: No
  Sender: FDA-Public Use
  Company Number: US-ELI_LILLY_AND_COMPANY-US201010004200

PATIENT
  Sex: Male

DRUGS (3)
  1. REMERON [Concomitant]
     Active Substance: MIRTAZAPINE
  2. ZYPREXA [Suspect]
     Active Substance: OLANZAPINE
     Indication: ANXIETY
     Dosage: UNK, DAILY (1/D)
     Dates: start: 2004
  3. LEXAPRO [Concomitant]
     Active Substance: ESCITALOPRAM OXALATE

REACTIONS (2)
  - Off label use [Not Recovered/Not Resolved]
  - Blood triglycerides increased [Not Recovered/Not Resolved]
